FAERS Safety Report 7720422-0 (Version None)
Quarter: 2011Q3

REPORT INFORMATION
  Report Type: 
  Country: None (occurrence: None)
  Receive Date: 20110830
  Receipt Date: 20110830
  Transmission Date: 20111222
  Serious: Yes (Hospitalization)
  Sender: FDA-Public Use
  Company Number: None

PATIENT
  Sex: Female
  Weight: 58.9 kg

DRUGS (5)
  1. CARBOPLATIN [Suspect]
     Dosage: 591 MG
     Dates: end: 20110721
  2. TOPROL-XL [Concomitant]
  3. DILTIAZEM [Concomitant]
  4. ONDANSETRON [Concomitant]
  5. TAXOL [Suspect]
     Dosage: 130 MG
     Dates: end: 20110721

REACTIONS (3)
  - CONSTIPATION [None]
  - FAECALOMA [None]
  - ABDOMINAL PAIN [None]
